FAERS Safety Report 21628803 (Version 1)
Quarter: 2022Q4

REPORT INFORMATION
  Report Type: Report from Study
  Country: TH (occurrence: None)
  Receive Date: 20221122
  Receipt Date: 20221122
  Transmission Date: 20230113
  Serious: Yes (Other)
  Sender: FDA-Public Use
  Company Number: 2021A777331

PATIENT
  Age: 955 Month
  Sex: Female

DRUGS (1)
  1. IRESSA [Suspect]
     Active Substance: GEFITINIB
     Indication: Non-small cell lung cancer
     Route: 048
     Dates: start: 20210516

REACTIONS (5)
  - Herpes zoster [Recovered/Resolved with Sequelae]
  - Lung cancer metastatic [Not Recovered/Not Resolved]
  - Prostate cancer [Unknown]
  - Pain in extremity [Recovered/Resolved with Sequelae]
  - Intentional product misuse [Unknown]

NARRATIVE: CASE EVENT DATE: 20211009
